FAERS Safety Report 9964719 (Version 1)
Quarter: 2014Q1

REPORT INFORMATION
  Report Type: Spontaneous
  Country: US (occurrence: US)
  Receive Date: 20140305
  Receipt Date: 20140305
  Transmission Date: 20141002
  Serious: No
  Sender: FDA-Public Use
  Company Number: US-AMGEN-USASP2013091131

PATIENT
  Age: 50 Year
  Sex: Female

DRUGS (2)
  1. ENBREL [Suspect]
     Indication: RHEUMATOID ARTHRITIS
     Dosage: 50 MG, QWK
     Route: 065
     Dates: start: 20110101, end: 201311
  2. METHOTREXATE [Concomitant]
     Dosage: 0.8 UNK, QWK
     Dates: start: 2006

REACTIONS (15)
  - Malaise [Unknown]
  - Nausea [Unknown]
  - Decreased appetite [Unknown]
  - Weight decreased [Unknown]
  - Inflammation [Not Recovered/Not Resolved]
  - Rotator cuff syndrome [Unknown]
  - Finger deformity [Not Recovered/Not Resolved]
  - Mobility decreased [Unknown]
  - Pain [Unknown]
  - Constipation [Unknown]
  - Stress [Unknown]
  - Breast pain [Not Recovered/Not Resolved]
  - Breast mass [Not Recovered/Not Resolved]
  - Tenderness [Not Recovered/Not Resolved]
  - Skin mass [Not Recovered/Not Resolved]
